FAERS Safety Report 4758100-2 (Version None)
Quarter: 2005Q3

REPORT INFORMATION
  Report Type: 
  Country: None (occurrence: None)
  Receive Date: 20050831
  Receipt Date: 20050829
  Transmission Date: 20060218
  Serious: Yes (Hospitalization)
  Sender: FDA-Public Use
  Company Number: US-MERCK-0508USA04481

PATIENT
  Age: 76 Year
  Sex: Female

DRUGS (2)
  1. FOSAMAX [Suspect]
     Indication: OSTEOPOROSIS
     Route: 048
     Dates: end: 20050801
  2. DIOVAN [Concomitant]
     Route: 065

REACTIONS (3)
  - CHEST DISCOMFORT [None]
  - PAIN IN EXTREMITY [None]
  - STOMACH DISCOMFORT [None]
